FAERS Safety Report 20684042 (Version 7)
Quarter: 2023Q1

REPORT INFORMATION
  Report Type: Report from Study
  Country: IE (occurrence: IE)
  Receive Date: 20220407
  Receipt Date: 20230309
  Transmission Date: 20230418
  Serious: Yes (Hospitalization)
  Sender: FDA-Public Use
  Company Number: IE-JNJFOC-20220201985

PATIENT
  Age: 85 Year
  Sex: Male
  Weight: 103.9 kg

DRUGS (15)
  1. ABIRATERONE [Suspect]
     Active Substance: ABIRATERONE
     Indication: Prostate cancer
     Dosage: 1000 MILLIGRAM, QD
     Route: 048
     Dates: start: 20210419
  2. ABIRATERONE [Suspect]
     Active Substance: ABIRATERONE
     Dosage: 1000 MILLIGRAM, QD
     Route: 048
     Dates: start: 20210426
  3. ASPIRIN [Concomitant]
     Active Substance: ASPIRIN
     Indication: Product used for unknown indication
     Dosage: 75 MILLIGRAM, QD
     Route: 065
  4. CARBOMER [Concomitant]
     Active Substance: CARBOMER
     Indication: Product used for unknown indication
     Dosage: 30 GRAM, QD
     Route: 065
  5. Decapeptyl [Concomitant]
     Indication: Product used for unknown indication
     Dosage: 120 MILLIGRAM, MONTHLY
     Route: 065
  6. Decapeptyl [Concomitant]
     Dosage: 11.25 MILLIGRAM, Q3MONTHS
     Route: 065
  7. PREDNISOLONE [Concomitant]
     Active Substance: PREDNISOLONE
     Indication: Product used for unknown indication
     Dosage: 5 MILLIGRAM, QD
     Route: 065
  8. FUROSEMIDE [Concomitant]
     Active Substance: FUROSEMIDE
     Indication: Product used for unknown indication
     Dosage: 40 MILLIGRAM, QD
     Route: 065
  9. IRON [Concomitant]
     Active Substance: IRON
     Indication: Product used for unknown indication
     Dosage: 305 MILLIGRAM, QD
     Route: 065
  10. XARELTO [Concomitant]
     Active Substance: RIVAROXABAN
     Indication: Product used for unknown indication
     Dosage: 20 MILLIGRAM, QD
     Route: 065
  11. FIRMAGON [Concomitant]
     Active Substance: DEGARELIX ACETATE
     Indication: Product used for unknown indication
     Dosage: 120 MILLIGRAM, MONTHLY
     Route: 065
  12. DUTASTERIDE\TAMSULOSIN [Concomitant]
     Active Substance: DUTASTERIDE\TAMSULOSIN
     Indication: Product used for unknown indication
     Dosage: 0.5 MILLIGRAM, QD
     Route: 065
  13. BISOPROLOL [Concomitant]
     Active Substance: BISOPROLOL
     Indication: Product used for unknown indication
     Dosage: 1.25 MILLIGRAM, QD
     Route: 065
  14. XGEVA [Concomitant]
     Active Substance: DENOSUMAB
     Indication: Prostate cancer
     Dosage: 120 MILLIGRAM, MONTHLY
     Route: 058
  15. XGEVA [Concomitant]
     Active Substance: DENOSUMAB
     Dosage: 120 MILLIGRAM (120MG/1.7 MLS)
     Route: 065

REACTIONS (5)
  - Fall [Recovering/Resolving]
  - Joint dislocation [Recovering/Resolving]
  - Oedema peripheral [Not Recovered/Not Resolved]
  - Weight decreased [Recovering/Resolving]
  - Neck pain [Not Recovered/Not Resolved]

NARRATIVE: CASE EVENT DATE: 20211215
